FAERS Safety Report 17316526 (Version 4)
Quarter: 2020Q2

REPORT INFORMATION
  Report Type: Report from Study
  Country: CA (occurrence: CA)
  Receive Date: 20200124
  Receipt Date: 20200605
  Transmission Date: 20200713
  Serious: Yes (Other)
  Sender: FDA-Public Use
  Company Number: CA-JNJFOC-20200124751

PATIENT
  Age: 11 Year
  Sex: Male
  Weight: 49 kg

DRUGS (2)
  1. REMICADE [Suspect]
     Active Substance: INFLIXIMAB
     Route: 042
  2. REMICADE [Suspect]
     Active Substance: INFLIXIMAB
     Indication: CROHN^S DISEASE
     Dosage: ON 25-FEB-2020, THE PATIENT RECEIVED 10TH INFLIXIMAB INFUSION FOR DOSE OF 450 MG
     Route: 042
     Dates: start: 20190510

REACTIONS (3)
  - Crohn^s disease [Not Recovered/Not Resolved]
  - Anal incontinence [Unknown]
  - Therapeutic product effect decreased [Unknown]

NARRATIVE: CASE EVENT DATE: 20191226
